FAERS Safety Report 8908366 (Version 4)
Quarter: 2013Q4

REPORT INFORMATION
  Report Type: Report from Study
  Country: US (occurrence: US)
  Receive Date: 20121114
  Receipt Date: 20131001
  Transmission Date: 20140711
  Serious: Yes (Hospitalization, Other)
  Sender: FDA-Public Use
  Company Number: US-ALEXION PHARMACEUTICALS INC.-A201202152

PATIENT
  Age: 23 Year
  Sex: Female
  Weight: 60.4 kg

DRUGS (5)
  1. SOLIRIS [Suspect]
     Indication: HAEMOLYTIC URAEMIC SYNDROME
     Dosage: 1200 MG, UNK
     Route: 042
     Dates: start: 20120920
  2. PREDNISONE [Concomitant]
     Dosage: 60 MG, UNK
  3. PREDNISONE [Concomitant]
     Dosage: 40 MG, UNK
  4. CIPRO [Concomitant]
     Indication: ANTIBIOTIC PROPHYLAXIS
     Dosage: UNK
  5. CELLCEPT [Concomitant]

REACTIONS (9)
  - Central venous catheterisation [Unknown]
  - Retching [Not Recovered/Not Resolved]
  - Abdominal pain [Recovered/Resolved]
  - Nausea [Not Recovered/Not Resolved]
  - Vomiting [Recovered/Resolved]
  - Constipation [Unknown]
  - Back pain [Unknown]
  - Wound complication [Unknown]
  - Catheter site pain [Unknown]
